FAERS Safety Report 7231957-1 (Version None)
Quarter: 2011Q1

REPORT INFORMATION
  Report Type: 
  Country: None (occurrence: None)
  Receive Date: 20110118
  Receipt Date: 20110107
  Transmission Date: 20110831
  Serious: Yes (Other)
  Sender: FDA-Public Use
  Company Number: US-ASTRAZENECA-2010SE49331

PATIENT
  Age: 46 Year
  Sex: Female
  Weight: 115.6 kg

DRUGS (22)
  1. SAVELLA [Suspect]
     Route: 048
     Dates: start: 20100601, end: 20100701
  2. ADVAIR HFA [Suspect]
     Indication: ASTHMA
     Dosage: 2 PUFFS BID (2 IN 1 D)
  3. ZYFLO CR [Suspect]
     Indication: ASTHMA
     Route: 048
  4. VITAMIN B-12 [Concomitant]
     Dosage: 1 IN 1 M
     Route: 058
  5. PULMICORT FLEXHALER [Suspect]
     Indication: ASTHMA
     Route: 055
  6. SAVELLA [Suspect]
     Route: 048
     Dates: start: 20100601, end: 20100601
  7. THEOPHYLLINE [Suspect]
     Indication: ASTHMA
     Route: 048
  8. RELPAX [Concomitant]
     Indication: MIGRAINE
     Dosage: AS REQUIRED
     Route: 048
  9. SAVELLA [Suspect]
     Route: 048
     Dates: start: 20100701, end: 20100801
  10. RHINOCORT [Concomitant]
     Indication: SEASONAL ALLERGY
     Dosage: 2 SPRAY DAILY (1 IN 1 D)
     Route: 045
  11. NEXIUM [Concomitant]
     Indication: GASTROOESOPHAGEAL REFLUX DISEASE
     Route: 048
  12. TOPAMAX [Concomitant]
     Indication: MIGRAINE
     Route: 048
  13. TOPAMAX [Concomitant]
     Route: 048
  14. PERCOCET [Concomitant]
     Indication: FIBROMYALGIA
     Dosage: 10/325 MG AS REQUIRED
     Route: 048
  15. SAVELLA [Suspect]
     Route: 048
     Dates: start: 20100801, end: 20100914
  16. MULTI-VITAMINS [Concomitant]
  17. SAVELLA [Suspect]
     Indication: FIBROMYALGIA
     Route: 048
     Dates: start: 20100601, end: 20100601
  18. SAVELLA [Suspect]
     Route: 048
     Dates: start: 20100601, end: 20100601
  19. THEOPHYLLINE [Suspect]
     Route: 048
  20. MAXAIR [Suspect]
     Indication: ASTHMA
     Dosage: 2 IN 1 D
  21. XYZAL [Concomitant]
     Indication: SEASONAL ALLERGY
     Route: 048
  22. CALCIUM/VITAMIN D [Concomitant]
     Route: 048

REACTIONS (4)
  - OVERDOSE [None]
  - CATARACT [None]
  - BLOOD PRESSURE INCREASED [None]
  - SINUSITIS [None]
